FAERS Safety Report 7663355-0 (Version None)
Quarter: 2011Q3

REPORT INFORMATION
  Report Type: 
  Country: None (occurrence: None)
  Receive Date: 20110805
  Receipt Date: 20101013
  Transmission Date: 20111222
  Serious: No
  Sender: FDA-Public Use
  Company Number: US-ABBOTT-09P-163-0604543-00

PATIENT
  Sex: Male
  Weight: 90.8 kg

DRUGS (2)
  1. ASPIRIN [Concomitant]
     Indication: PRODUCT USED FOR UNKNOWN INDICATION
     Route: 048
  2. NIASPAN [Suspect]
     Indication: HYPERLIPIDAEMIA
     Dosage: 500MG X4, REDUCED TO X3, THEN X2, ALL HS
     Route: 048
     Dates: start: 20080101

REACTIONS (1)
  - FLUSHING [None]
